FAERS Safety Report 5278701-5 (Version None)
Quarter: 2007Q1

REPORT INFORMATION
  Report Type: 
  Country: None (occurrence: None)
  Receive Date: 20061208
  Receipt Date: 20060920
  Transmission Date: 20070707
  Serious: Yes (Death)
  Sender: FDA-Public Use
  Company Number: 20012238

PATIENT
  Age: 17 Year
  Sex: Male
  Weight: 56.2 kg

DRUGS (8)
  1. OXYCONTIN [Suspect]
     Indication: DRUG USE FOR UNKNOWN INDICATION
     Dosage: ORAL
     Route: 048
  2. HYDROCODONE BITARTRATE (SIMILAR TO IND 59,175) [Suspect]
     Indication: DRUG USE FOR UNKNOWN INDICATION
  3. METHILENEDIOXYAMPHETAMINE (METHYLENEDIOXYAMPHETAMINE) [Suspect]
     Indication: DRUG USE FOR UNKNOWN INDICATION
  4. CANNABIS (CANNABIS) [Suspect]
     Indication: DRUG USE FOR UNKNOWN INDICATION
  5. METHAMPHETAMINE HYDROCHLORIDE [Suspect]
     Indication: DRUG USE FOR UNKNOWN INDICATION
  6. CAFFEINE (CAFFEINE) [Suspect]
     Indication: DRUG USE FOR UNKNOWN INDICATION
  7. ATRACURIUM BESYLATE [Suspect]
     Indication: DRUG USE FOR UNKNOWN INDICATION
  8. XANAX [Concomitant]

REACTIONS (2)
  - DRUG ABUSER [None]
  - MULTIPLE DRUG OVERDOSE ACCIDENTAL [None]
